FAERS Safety Report 10095933 (Version 2)
Quarter: 2014Q2

REPORT INFORMATION
  Report Type: Spontaneous
  Country: US (occurrence: US)
  Receive Date: 20140422
  Receipt Date: 20140422
  Transmission Date: 20141212
  Serious: No
  Sender: FDA-Public Use
  Company Number: US-GILEAD-2013-0076488

PATIENT
  Sex: Male

DRUGS (5)
  1. LETAIRIS [Suspect]
     Indication: PULMONARY ARTERIAL HYPERTENSION
     Dosage: 10 MG, QD
     Dates: start: 20120310
  2. LETAIRIS [Suspect]
     Indication: CREST SYNDROME
  3. LETAIRIS [Suspect]
     Indication: SCLERODERMA
  4. TYVASO [Concomitant]
  5. ADCIRCA [Concomitant]

REACTIONS (10)
  - Dysphonia [Unknown]
  - Oral candidiasis [Unknown]
  - Unevaluable event [Unknown]
  - Stomatitis [Unknown]
  - Productive cough [Unknown]
  - Oral pain [Unknown]
  - Glossodynia [Unknown]
  - Oropharyngeal pain [Unknown]
  - Dizziness [Unknown]
  - Peripheral swelling [Unknown]
